FAERS Safety Report 4281102-X (Version None)
Quarter: 2004Q1

REPORT INFORMATION
  Report Type: 
  Country: None (occurrence: None)
  Receive Date: 20040112
  Receipt Date: 20030929
  Transmission Date: 20041129
  Serious: Yes (Other)
  Sender: FDA-Public Use
  Company Number: 346709

PATIENT
  Age: 42 Year
  Sex: Male
  Weight: 82.6 kg

DRUGS (4)
  1. FUZEON [Suspect]
     Indication: HIV INFECTION
     Dosage: 100 MG/ML 2 PER DAY SUBCUTANEOUS
     Route: 058
     Dates: start: 20000313
  2. COMBIVIR [Concomitant]
  3. EFAVIRENZ (EFAVIRENZ) [Concomitant]
  4. CHLORTRIMETON (CHLORPHENIRAMINE MALEATE) [Concomitant]

REACTIONS (2)
  - MEDICATION ERROR [None]
  - NO ADVERSE DRUG EFFECT [None]
